FAERS Safety Report 7358928-9 (Version None)
Quarter: 2011Q1

REPORT INFORMATION
  Report Type: 
  Country: None (occurrence: None)
  Receive Date: 20110317
  Receipt Date: 20110315
  Transmission Date: 20110831
  Serious: Yes (Life-Threatening)
  Sender: FDA-Public Use
  Company Number: IT-ASTRAZENECA-2011SE14532

PATIENT
  Sex: Male

DRUGS (2)
  1. NEBIVOLOLO ACTAVIS [Concomitant]
     Route: 048
     Dates: start: 20010101
  2. CRESTOR [Suspect]
     Indication: HYPERCHOLESTEROLAEMIA
     Route: 048
     Dates: start: 20100501, end: 20110222

REACTIONS (2)
  - AZOTAEMIA [None]
  - HYPERCREATININAEMIA [None]
